FAERS Safety Report 8590250-5 (Version None)
Quarter: 2012Q3

REPORT INFORMATION
  Report Type: 
  Country: None (occurrence: None)
  Receive Date: 20120813
  Receipt Date: 20120806
  Transmission Date: 20120928
  Serious: Yes (Hospitalization)
  Sender: FDA-Public Use
  Company Number: US-GLAXOSMITHKLINE-A0846807A

PATIENT
  Age: 67 Year
  Sex: Female
  Weight: 86.4 kg

DRUGS (1)
  1. AVANDAMET [Suspect]
     Indication: TYPE 2 DIABETES MELLITUS
     Dosage: 1TAB PER DAY
     Route: 048
     Dates: start: 20061101, end: 20080501

REACTIONS (4)
  - AMNESIA [None]
  - ASTHENIA [None]
  - HYPOKINESIA [None]
  - CEREBROVASCULAR ACCIDENT [None]
